FAERS Safety Report 6338262-6 (Version None)
Quarter: 2009Q3

REPORT INFORMATION
  Report Type: 
  Country: None (occurrence: None)
  Receive Date: 20090902
  Receipt Date: 20090824
  Transmission Date: 20100115
  Serious: Yes (Other)
  Sender: FDA-Public Use
  Company Number: GB-WATSON-2009-06924

PATIENT
  Age: 80 Year
  Sex: Male
  Weight: 70 kg

DRUGS (1)
  1. ENALAPRIL (WATSON LABORATORIES) [Suspect]
     Indication: HYPERTENSION
     Dosage: 10 MG, BID

REACTIONS (3)
  - GRAND MAL CONVULSION [None]
  - HYPONATRAEMIA [None]
  - INAPPROPRIATE ANTIDIURETIC HORMONE SECRETION [None]
